FAERS Safety Report 20169962 (Version 1)
Quarter: 2021Q4

REPORT INFORMATION
  Report Type: Report from Study
  Country: US (occurrence: US)
  Receive Date: 20211210
  Receipt Date: 20211210
  Transmission Date: 20220303
  Serious: No
  Sender: FDA-Public Use
  Company Number: US-GLAXOSMITHKLINE-US2021AMR207453

PATIENT
  Sex: Male

DRUGS (1)
  1. BELANTAMAB MAFODOTIN [Suspect]
     Active Substance: BELANTAMAB MAFODOTIN
     Indication: Plasma cell myeloma
     Dosage: 250 MG, Z, EVERY 3 WEEKS
     Dates: start: 20210823

REACTIONS (4)
  - Keratopathy [Recovering/Resolving]
  - Visual acuity reduced [Not Recovered/Not Resolved]
  - Corneal deposits [Recovering/Resolving]
  - Night blindness [Unknown]

NARRATIVE: CASE EVENT DATE: 20210101
